FAERS Safety Report 17646005 (Version 2)
Quarter: 2021Q1

REPORT INFORMATION
  Report Type: Spontaneous
  Country: US (occurrence: US)
  Receive Date: 20200408
  Receipt Date: 20210223
  Transmission Date: 20210419
  Serious: No
  Sender: FDA-Public Use
  Company Number: US-SA-2020SA084579

PATIENT
  Age: 33 Year
  Sex: Female
  Weight: 76.19 kg

DRUGS (1)
  1. DUPIXENT [Suspect]
     Active Substance: DUPILUMAB
     Indication: DERMATITIS ATOPIC
     Dosage: 300 MG, QOW
     Route: 058
     Dates: start: 20190201

REACTIONS (4)
  - Dermatitis atopic [Unknown]
  - Condition aggravated [Unknown]
  - Rash [Unknown]
  - Skin exfoliation [Unknown]
